FAERS Safety Report 5039818-3 (Version None)
Quarter: 2006Q2

REPORT INFORMATION
  Report Type: 
  Country: None (occurrence: None)
  Receive Date: 20060601
  Receipt Date: 20060110
  Transmission Date: 20061013
  Serious: No
  Sender: FDA-Public Use
  Company Number: 2006PV006890

PATIENT
  Age: 42 Year
  Sex: Female
  Weight: 87.5442 kg

DRUGS (4)
  1. BYETTA [Suspect]
     Indication: DIABETES MELLITUS NON-INSULIN-DEPENDENT
     Dosage: 5 MCG;BID;SC
     Route: 058
     Dates: start: 20051229
  2. NOVOLOG [Concomitant]
  3. LANTUS [Concomitant]
  4. ACTOS [Concomitant]

REACTIONS (2)
  - NAUSEA [None]
  - OLIGOMENORRHOEA [None]
